FAERS Safety Report 7261084-9 (Version None)
Quarter: 2011Q1

REPORT INFORMATION
  Report Type: 
  Country: None (occurrence: None)
  Receive Date: 20110130
  Receipt Date: 20101229
  Transmission Date: 20110831
  Serious: No
  Sender: FDA-Public Use
  Company Number: US-ABBOTT-10P-163-0694196-00

PATIENT
  Sex: Female
  Weight: 100.79 kg

DRUGS (18)
  1. SIMVASTATIN [Concomitant]
     Indication: BLOOD CHOLESTEROL INCREASED
     Route: 048
  2. PRESTIQUE [Concomitant]
     Indication: ANXIETY
     Route: 048
  3. DIPHENOXYLATE HCL + ATROPINE SULFATE [Concomitant]
     Indication: COLECTOMY
     Dosage: AS NEEDED
     Route: 048
  4. CLONAZEPAM [Concomitant]
     Indication: ANXIETY
     Route: 048
  5. HUMIRA [Suspect]
     Indication: ANKYLOSING SPONDYLITIS
     Route: 058
     Dates: start: 20100601, end: 20101229
  6. LEVOTHYROXINE SODIUM [Concomitant]
     Indication: HYPOTHYROIDISM
     Route: 048
  7. LORATADINE [Concomitant]
     Indication: SEASONAL ALLERGY
     Route: 048
  8. NORTREL 7/7/7 [Concomitant]
     Indication: POLYCYSTIC OVARIES
  9. VITAMIN D [Concomitant]
     Indication: VITAMIN SUPPLEMENTATION
     Route: 048
  10. OMEPRAZOLE [Concomitant]
     Indication: GASTROOESOPHAGEAL REFLUX DISEASE
     Route: 048
  11. IRON SUPPLEMENT [Concomitant]
     Indication: MINERAL SUPPLEMENTATION
     Route: 048
  12. NORTREL 7/7/7 [Concomitant]
     Indication: CONTRACEPTION
     Route: 048
  13. PRESTIQUE [Concomitant]
     Indication: DEPRESSION
  14. MULTI-VITAMIN [Concomitant]
     Indication: VITAMIN SUPPLEMENTATION
     Route: 048
  15. VITAMIN B-12 [Concomitant]
     Indication: VITAMIN SUPPLEMENTATION
     Route: 048
  16. CLONAZEPAM [Concomitant]
     Indication: INSOMNIA
  17. METHLYN [Concomitant]
     Indication: SLEEP APNOEA SYNDROME
     Dosage: 1.5 TABS
     Route: 048
  18. METHLYN [Concomitant]
     Indication: SOMNOLENCE

REACTIONS (5)
  - ALOPECIA [None]
  - NAUSEA [None]
  - HEADACHE [None]
  - DIZZINESS [None]
  - RASH [None]
